FAERS Safety Report 5474852-0 (Version None)
Quarter: 2007Q3

REPORT INFORMATION
  Report Type: 
  Country: None (occurrence: None)
  Receive Date: 20070928
  Receipt Date: 20070919
  Transmission Date: 20080115
  Serious: Yes (Hospitalization)
  Sender: FDA-Public Use
  Company Number: 2007-03080

PATIENT
  Age: 71 Year
  Sex: Female
  Weight: 73 kg

DRUGS (9)
  1. VELCADE [Suspect]
     Indication: MULTIPLE MYELOMA
     Dosage: 1.30 MG/M2; 0.40 MG/M2; 1.30 MG/M2; 0.70 MG/M2
     Dates: start: 20070522, end: 20070629
  2. VELCADE [Suspect]
     Indication: MULTIPLE MYELOMA
     Dosage: 1.30 MG/M2; 0.40 MG/M2; 1.30 MG/M2; 0.70 MG/M2
     Dates: start: 20070703, end: 20070703
  3. VELCADE [Suspect]
     Indication: MULTIPLE MYELOMA
     Dosage: 1.30 MG/M2; 0.40 MG/M2; 1.30 MG/M2; 0.70 MG/M2
     Dates: start: 20070712, end: 20070816
  4. VELCADE [Suspect]
     Indication: MULTIPLE MYELOMA
     Dosage: 1.30 MG/M2; 0.40 MG/M2; 1.30 MG/M2; 0.70 MG/M2
     Dates: start: 20070827, end: 20070906
  5. ZOLEDRONIC ACID [Concomitant]
  6. DEXAMETHASONE 0.5MG TAB [Concomitant]
  7. VALACYCLOVIR [Concomitant]
  8. ITRACONAZOLE [Concomitant]
  9. MULTIVITAMINS (ERGOCALCIFEROL, PANTHENOL, NICOTINAMIDE, RIBOFLAVIN, TH [Concomitant]

REACTIONS (8)
  - ASCITES [None]
  - CHOLECYSTITIS [None]
  - DISEASE PROGRESSION [None]
  - HEPATIC ENZYME INCREASED [None]
  - NEUROPATHY [None]
  - NEUTROPENIA [None]
  - PLEURITIC PAIN [None]
  - THROMBOCYTHAEMIA [None]
